FAERS Safety Report 10514871 (Version 1)
Quarter: 2014Q4

REPORT INFORMATION
  Report Type: Report from Study
  Country: SE (occurrence: SE)
  Receive Date: 20141013
  Receipt Date: 20141013
  Transmission Date: 20150528
  Serious: Yes (Death)
  Sender: FDA-Public Use
  Company Number: SE-BAXTER-2014BAX059586

PATIENT
  Sex: Female

DRUGS (1)
  1. SENDOXAN 50 MG DRAGERAD TABLETT [Suspect]
     Active Substance: CYCLOPHOSPHAMIDE
     Indication: BREAST CANCER
     Dosage: DAYS 1-14 IN 28 DAY CYCLES
     Route: 048

REACTIONS (1)
  - Myocardial ischaemia [Fatal]
